FAERS Safety Report 7072858-1 (Version None)
Quarter: 2010Q4

REPORT INFORMATION
  Report Type: 
  Country: None (occurrence: None)
  Receive Date: 20101029
  Receipt Date: 20100322
  Transmission Date: 20110411
  Serious: No
  Sender: FDA-Public Use
  Company Number: A0851394A

PATIENT
  Age: 67 Year
  Sex: Female

DRUGS (11)
  1. ADVAIR DISKUS 100/50 [Suspect]
     Indication: CHRONIC OBSTRUCTIVE PULMONARY DISEASE
     Route: 055
     Dates: start: 20100101
  2. SINGULAIR [Concomitant]
  3. LEVOTHYROXINE [Concomitant]
  4. OXYCONTIN [Concomitant]
  5. OMEPRAZOLE [Concomitant]
  6. LASIX [Concomitant]
  7. CALCIUM [Concomitant]
  8. POTASSIUM CHLORIDE [Concomitant]
  9. IRON [Concomitant]
  10. TOPROL-XL [Concomitant]
  11. REMERON [Concomitant]

REACTIONS (2)
  - ALOPECIA [None]
  - URINARY TRACT INFECTION [None]
